FAERS Safety Report 21471563 (Version 1)
Quarter: 2022Q4

REPORT INFORMATION
  Report Type: Report from Study
  Country: AU (occurrence: AU)
  Receive Date: 20221018
  Receipt Date: 20221018
  Transmission Date: 20230112
  Serious: Yes (Hospitalization, Other)
  Sender: FDA-Public Use
  Company Number: AU-JNJFOC-20221013224

PATIENT

DRUGS (1)
  1. CONCERTA [Suspect]
     Active Substance: METHYLPHENIDATE HYDROCHLORIDE
     Indication: Product used for unknown indication
     Route: 064

REACTIONS (5)
  - Small for dates baby [Unknown]
  - Premature baby [Unknown]
  - Low birth weight baby [Unknown]
  - Intensive care [Unknown]
  - Foetal exposure during pregnancy [Unknown]
